FAERS Safety Report 15287313 (Version 2)
Quarter: 2018Q3

REPORT INFORMATION
  Report Type: Spontaneous
  Country: DE (occurrence: DE)
  Receive Date: 20180817
  Receipt Date: 20180912
  Transmission Date: 20181010
  Serious: Yes (Other)
  Sender: FDA-Public Use
  Company Number: DE-AUROBINDO-AUR-APL-2018-041729

PATIENT
  Age: 72 Year
  Sex: Male
  Weight: 75 kg

DRUGS (6)
  1. MEDITONSIN [Suspect]
     Active Substance: HOMEOPATHICS
     Indication: BRONCHITIS
     Dosage: UNK
     Route: 065
  2. ELIQUIS [Suspect]
     Active Substance: APIXABAN
     Dosage: 2.5 MG, BID
     Route: 065
     Dates: start: 201801, end: 201803
  3. FINASTERIDE. [Suspect]
     Active Substance: FINASTERIDE
     Indication: PROSTATIC DISORDER
     Dosage: UNK
     Route: 065
  4. ELIQUIS [Suspect]
     Active Substance: APIXABAN
     Dosage: 10 MG, BID
     Route: 065
  5. ELIQUIS [Suspect]
     Active Substance: APIXABAN
     Indication: DEEP VEIN THROMBOSIS
     Dosage: 5 MG, BID
     Route: 065
  6. MEDITONSIN [Suspect]
     Active Substance: HOMEOPATHICS
     Indication: PROSTATIC DISORDER

REACTIONS (7)
  - Cardiac ventricular thrombosis [Unknown]
  - Thrombosis [Unknown]
  - Drug interaction [Recovered/Resolved]
  - Anti factor Xa activity decreased [Unknown]
  - Bronchitis [Recovered/Resolved]
  - Deep vein thrombosis [Recovered/Resolved]
  - Venous thrombosis [Recovered/Resolved]

NARRATIVE: CASE EVENT DATE: 2018
